FAERS Safety Report 9676118 (Version 3)
Quarter: 2013Q4

REPORT INFORMATION
  Report Type: Spontaneous
  Country: US (occurrence: None)
  Receive Date: 20131105
  Receipt Date: 20131126
  Transmission Date: 20140711
  Serious: Yes (Hospitalization)
  Sender: FDA-Public Use
  Company Number: SYM-2013-12389

PATIENT
  Age: 57 Year
  Sex: Female

DRUGS (19)
  1. ELIDEL [Suspect]
     Indication: PRODUCT USED FOR UNKNOWN INDICATION
     Route: 061
  2. TRAMADOL HCI [Suspect]
     Indication: PAIN
     Route: 048
     Dates: start: 20130219
  3. MUPIROCIN [Suspect]
     Indication: PRODUCT USED FOR UNKNOWN INDICATION
     Route: 061
  4. CLOBETASOL PROPIONATE CREAM USP 0.05 % [Suspect]
     Indication: PRODUCT USED FOR UNKNOWN INDICATION
     Route: 061
  5. ASTELIN [Suspect]
     Indication: PRODUCT USED FOR UNKNOWN INDICATION
     Route: 045
  6. LIORESAL [Suspect]
     Indication: MUSCLE SPASTICITY
     Dosage: 1698.3 MCG, 1 IN 1 D, INTRA-TRACHEAL
     Route: 039
     Dates: start: 20110330
  7. BACLOFEN [Suspect]
     Indication: PRODUCT USED FOR UNKNOWN INDICATION
     Route: 048
     Dates: start: 20130515
  8. VOLTAREN EMUGEL [Suspect]
     Indication: PRODUCT USED FOR UNKNOWN INDICATION
     Route: 061
     Dates: start: 20130415
  9. TIZANIDINE [Suspect]
     Indication: PRODUCT USED FOR UNKNOWN INDICATION
     Dosage: 1-2 DF, 3 IN 1 D, ORAL
     Route: 048
     Dates: start: 20130515
  10. CETIRIZINE [Suspect]
     Indication: PRODUCT USED FOR UNKNOWN INDICATION
     Route: 048
  11. RANITIDINE [Suspect]
     Indication: PRODUCT USED FOR UNKNOWN INDICATION
     Route: 048
  12. PROTONIX [Suspect]
     Indication: PRODUCT USED FOR UNKNOWN INDICATION
     Route: 048
  13. DULCOLAX [Suspect]
     Indication: PRODUCT USED FOR UNKNOWN INDICATION
  14. CELEXA [Suspect]
     Indication: PRODUCT USED FOR UNKNOWN INDICATION
     Route: 048
  15. FLONASE [Suspect]
     Indication: PRODUCT USED FOR UNKNOWN INDICATION
     Route: 045
  16. VITAMIN D3 [Suspect]
     Indication: PRODUCT USED FOR UNKNOWN INDICATION
     Route: 048
  17. PROCTOZONE H [Suspect]
     Indication: PRODUCT USED FOR UNKNOWN INDICATION
  18. TYLENOL PM [Suspect]
     Indication: SLEEP DISORDER
     Route: 048
  19. SILVER SULFADIAZINE [Suspect]
     Indication: PRODUCT USED FOR UNKNOWN INDICATION
     Route: 061

REACTIONS (5)
  - Muscle spasms [None]
  - Muscle spasticity [None]
  - Medical device complication [None]
  - Pain [None]
  - Condition aggravated [None]
